FAERS Safety Report 6075078-2 (Version None)
Quarter: 2009Q1

REPORT INFORMATION
  Report Type: 
  Country: None (occurrence: None)
  Receive Date: 20090210
  Receipt Date: 20090210
  Transmission Date: 20090719
  Serious: No
  Sender: FDA-Public Use
  Company Number: None

PATIENT

DRUGS (1)
  1. PENICILLIN [Suspect]
     Dates: start: 20090117, end: 20090118

REACTIONS (5)
  - PRODUCT QUALITY ISSUE [None]
  - PRURITUS [None]
  - RASH PAPULAR [None]
  - REACTION TO AZO-DYES [None]
  - URTICARIA [None]
